FAERS Safety Report 23989827 (Version 1)
Quarter: 2024Q2

REPORT INFORMATION
  Report Type: Spontaneous
  Country: US (occurrence: US)
  Receive Date: 20240619
  Receipt Date: 20240619
  Transmission Date: 20240715
  Serious: No
  Sender: FDA-Public Use
  Company Number: US-MEITHEAL-2024MPSPO00084

PATIENT

DRUGS (2)
  1. GANIRELIX [Suspect]
     Active Substance: GANIRELIX
     Indication: Product used for unknown indication
     Route: 065
  2. GANIRELIX [Suspect]
     Active Substance: GANIRELIX

REACTIONS (1)
  - Drug ineffective [Unknown]
